FAERS Safety Report 6608477-8 (Version None)
Quarter: 2010Q1

REPORT INFORMATION
  Report Type: 
  Country: None (occurrence: None)
  Receive Date: 20100301
  Receipt Date: 20100219
  Transmission Date: 20100710
  Serious: Yes (Hospitalization)
  Sender: FDA-Public Use
  Company Number: FR-MERCK-0909FRA00003

PATIENT
  Age: 48 Year
  Sex: Male

DRUGS (5)
  1. ISENTRESS [Suspect]
     Indication: HIV INFECTION
     Route: 048
     Dates: start: 20080101
  2. LOPINAVIR AND RITONAVIR [Suspect]
     Indication: HIV INFECTION
     Route: 048
     Dates: start: 20080101
  3. ETRAVIRINE [Suspect]
     Indication: HIV INFECTION
     Route: 048
     Dates: start: 20080101
  4. LOPERAMIDE HYDROCHLORIDE [Concomitant]
     Route: 065
  5. CHOLECALCIFEROL [Concomitant]
     Route: 065

REACTIONS (1)
  - RENAL TUBULAR DISORDER [None]
